FAERS Safety Report 7154811 (Version 2)
Quarter: 2014Q2

REPORT INFORMATION
  Report Type: Spontaneous
  Country: None (occurrence: None)
  Receive Date: 20091008
  Receipt Date: 20140415
  Transmission Date: 20141212
  Serious: Yes (Other)
  Sender: FDA-Public Use
  Company Number: AUR-APL-2009-00706

PATIENT
  Age: 58 Year
  Sex: Male

DRUGS (6)
  1. ZIDOVUDINE [Suspect]
     Indication: HIV INFECTION
  2. LAMIVUDINE [Suspect]
     Indication: HIV INFECTION
  3. STAVUDINE [Suspect]
     Indication: HIV INFECTION
  4. DIDANOSINE [Suspect]
     Indication: HIV INFECTION
  5. INDINAVIR [Suspect]
     Indication: HIV INFECTION
  6. RITONAVIR [Suspect]
     Indication: HIV INFECTION

REACTIONS (10)
  - Mitochondrial toxicity [None]
  - Lipodystrophy acquired [None]
  - Eyelid ptosis [None]
  - Ophthalmoplegia [None]
  - Fatigue [None]
  - Myalgia [None]
  - Migraine [None]
  - Blood lactic acid increased [None]
  - Diplopia [None]
  - Headache [None]
